FAERS Safety Report 4664048-4 (Version None)
Quarter: 2005Q2

REPORT INFORMATION
  Report Type: 
  Country: None (occurrence: None)
  Receive Date: 20050516
  Receipt Date: 20050503
  Transmission Date: 20051028
  Serious: Yes (Other)
  Sender: FDA-Public Use
  Company Number: 2005069415

PATIENT
  Sex: Male

DRUGS (2)
  1. BENADRYL [Suspect]
     Dosage: 15-20 TABS ONCE, ORAL
     Route: 048
     Dates: start: 20050503, end: 20050503
  2. ETHANOL [Suspect]
     Dosage: 2 BEERS ONCE, ORAL
     Route: 048
     Dates: start: 20050503, end: 20050503

REACTIONS (4)
  - DISORIENTATION [None]
  - DISTURBANCE IN ATTENTION [None]
  - DYSARTHRIA [None]
  - SOMNOLENCE [None]
